FAERS Safety Report 7098093-9 (Version None)
Quarter: 2010Q4

REPORT INFORMATION
  Report Type: 
  Country: None (occurrence: None)
  Receive Date: 20101112
  Receipt Date: 20101029
  Transmission Date: 20110411
  Serious: Yes (Other)
  Sender: FDA-Public Use
  Company Number: PHHY2010JP73993

PATIENT

DRUGS (6)
  1. ZOMETA [Suspect]
     Indication: METASTASES TO BONE
     Dosage: UNK
     Route: 041
     Dates: start: 20100914
  2. ZOMETA [Suspect]
     Dosage: UNK
     Dates: start: 20101005
  3. ZOMETA [Suspect]
     Dosage: UNK
     Dates: start: 20101028
  4. WARFARIN [Suspect]
     Dosage: UNK
  5. AVASTIN [Concomitant]
  6. OXALIPLATIN [Concomitant]

REACTIONS (4)
  - BLOOD CREATININE INCREASED [None]
  - HAEMATOCHEZIA [None]
  - HAEMATURIA [None]
  - OLIGURIA [None]
